FAERS Safety Report 24254221 (Version 1)
Quarter: 2024Q3

REPORT INFORMATION
  Report Type: Report from Study
  Country: US (occurrence: US)
  Receive Date: 20240827
  Receipt Date: 20240827
  Transmission Date: 20241016
  Serious: No
  Sender: PFIZER
  Company Number: US-PFIZER INC-PV202400109574

PATIENT
  Age: 12 Year
  Sex: Male
  Weight: 32.2 kg

DRUGS (6)
  1. NGENLA [Suspect]
     Active Substance: SOMATROGON-GHLA
     Dosage: 60 MILLIGRAM/1.2 MILLILITRE
     Route: 065
  2. SKYTROFA [LONAPEGSOMATROPIN] [Concomitant]
     Indication: Hypopituitarism
     Dosage: 7.6 MG, WEEKLY (7.6 MG, EVERY WEEK)
     Route: 058
     Dates: start: 202312
  3. ARIPIPRAZOLE [Concomitant]
     Active Substance: ARIPIPRAZOLE
  4. ATOMOXETINE [Concomitant]
     Active Substance: ATOMOXETINE HYDROCHLORIDE
  5. SERTRALINE [Concomitant]
     Active Substance: SERTRALINE HYDROCHLORIDE
  6. METHYLPHENIDATE [Concomitant]
     Active Substance: METHYLPHENIDATE

REACTIONS (1)
  - Injection site pain [Unknown]
